FAERS Safety Report 22263898 (Version 1)
Quarter: 2023Q2

REPORT INFORMATION
  Report Type: Report from Study
  Country: US (occurrence: US)
  Receive Date: 20230428
  Receipt Date: 20230428
  Transmission Date: 20230722
  Serious: Yes (Other)
  Sender: FDA-Public Use
  Company Number: US-GILEAD-2023-0620270

PATIENT
  Sex: Female

DRUGS (1)
  1. SOFOSBUVIR\VELPATASVIR [Suspect]
     Active Substance: SOFOSBUVIR\VELPATASVIR
     Indication: Hepatitis C
     Dosage: 400/100MG TAKING ONE TABLET BY MOUTH ONCE DAILY
     Route: 048
     Dates: start: 20230130

REACTIONS (2)
  - Osteoporosis [Unknown]
  - Muscle strain [Not Recovered/Not Resolved]
